FAERS Safety Report 24423365 (Version 2)
Quarter: 2024Q4

REPORT INFORMATION
  Report Type: Spontaneous
  Country: DE (occurrence: DE)
  Receive Date: 20241010
  Receipt Date: 20241014
  Transmission Date: 20250114
  Serious: No
  Sender: TORRENT PHARMA INC.
  Company Number: None

PATIENT
  Age: 61 Year
  Sex: Female
  Weight: 100 kg

DRUGS (1)
  1. LEVOFLOXACIN [Suspect]
     Active Substance: LEVOFLOXACIN
     Indication: Cystitis noninfective
     Dosage: 1-0-1
     Route: 048
     Dates: start: 20221102, end: 20221107

REACTIONS (7)
  - Oedema peripheral [Recovered/Resolved with Sequelae]
  - Tendon discomfort [Recovered/Resolved with Sequelae]
  - Gait disturbance [Unknown]
  - Impaired quality of life [Not Recovered/Not Resolved]
  - Localised oedema [Recovered/Resolved with Sequelae]
  - Waist circumference increased [Recovered/Resolved with Sequelae]
  - Muscular weakness [Recovered/Resolved with Sequelae]

NARRATIVE: CASE EVENT DATE: 20230410
